FAERS Safety Report 20631239 (Version 1)
Quarter: 2022Q1

REPORT INFORMATION
  Report Type: Spontaneous
  Country: US (occurrence: None)
  Receive Date: 20220323
  Receipt Date: 20220323
  Transmission Date: 20220423
  Serious: Yes (Death)
  Sender: FDA-Public Use
  Company Number: None

PATIENT
  Age: 76 Year
  Sex: Male
  Weight: 68.04 kg

DRUGS (8)
  1. LUPRON DEPOT [Suspect]
     Active Substance: LEUPROLIDE ACETATE
     Indication: Bladder cancer
     Dosage: FREQUENCY : MONTHLY;?
     Route: 030
  2. ALPHAGAN P [Concomitant]
     Active Substance: BRIMONIDINE TARTRATE
  3. AVODART [Concomitant]
     Active Substance: DUTASTERIDE
  4. BICALUTAMIDE [Concomitant]
     Active Substance: BICALUTAMIDE
  5. DILTIAZEM [Concomitant]
     Active Substance: DILTIAZEM
  6. OMEPRAZOLE [Concomitant]
     Active Substance: OMEPRAZOLE
  7. OXYBUTYNIN [Concomitant]
     Active Substance: OXYBUTYNIN
  8. TRAVATAN [Concomitant]
     Active Substance: TRAVOPROST

REACTIONS (1)
  - Death [None]

NARRATIVE: CASE EVENT DATE: 20220321
